FAERS Safety Report 23024680 (Version 2)
Quarter: 2023Q4

REPORT INFORMATION
  Report Type: Spontaneous
  Country: JP (occurrence: JP)
  Receive Date: 20231004
  Receipt Date: 20231004
  Transmission Date: 20240110
  Serious: Yes (Other)
  Sender: FDA-Public Use
  Company Number: JP-SAKK-01785622

PATIENT
  Sex: Male

DRUGS (1)
  1. DUPIXENT [Suspect]
     Active Substance: DUPILUMAB
     Indication: Chronic eosinophilic rhinosinusitis
     Dosage: UNK
     Route: 058
     Dates: start: 202305

REACTIONS (3)
  - Eosinophilic otitis media [Recovering/Resolving]
  - Tinnitus [Recovering/Resolving]
  - Otorrhoea [Recovering/Resolving]

NARRATIVE: CASE EVENT DATE: 20230501
